FAERS Safety Report 9309046 (Version 2)
Quarter: 2013Q4

REPORT INFORMATION
  Report Type: Spontaneous
  Country: FR (occurrence: FR)
  Receive Date: 20130524
  Receipt Date: 20131101
  Transmission Date: 20140711
  Serious: Yes (Hospitalization)
  Sender: FDA-Public Use
  Company Number: FR-BAXTER-2013BAX018089

PATIENT
  Age: 37 Year
  Sex: Female

DRUGS (3)
  1. ENDOXAN 2000 MG, LYOPHILISAT POUR SOLUTION INJECTABLE [Suspect]
     Indication: BREAST CANCER
     Route: 042
     Dates: start: 20130311, end: 20130311
  2. FARMORUBICINE [Suspect]
     Indication: BREAST CANCER
     Route: 042
     Dates: start: 20130311, end: 20130311
  3. FLUOROURACILE [Suspect]
     Indication: BREAST CANCER
     Route: 042
     Dates: start: 20130311, end: 20130311

REACTIONS (2)
  - Ejection fraction decreased [Recovered/Resolved]
  - Dyspnoea [Recovered/Resolved]
